FAERS Safety Report 5943379-1 (Version None)
Quarter: 2008Q4

REPORT INFORMATION
  Report Type: 
  Country: None (occurrence: None)
  Receive Date: 20081106
  Receipt Date: 20081030
  Transmission Date: 20090506
  Serious: Yes (Hospitalization, Other)
  Sender: FDA-Public Use
  Company Number: GB-GILEAD-2008-0018874

PATIENT
  Age: 32 Year
  Sex: Male
  Weight: 60 kg

DRUGS (2)
  1. TRUVADA [Suspect]
     Indication: HIV INFECTION
     Route: 048
     Dates: start: 20080927, end: 20081012
  2. EFAVIRENZ [Concomitant]

REACTIONS (1)
  - FEBRILE NEUTROPENIA [None]
